FAERS Safety Report 8025672-4 (Version None)
Quarter: 2012Q1

REPORT INFORMATION
  Report Type: 
  Country: None (occurrence: None)
  Receive Date: 20120105
  Receipt Date: 20111229
  Transmission Date: 20120608
  Serious: Yes (Other)
  Sender: FDA-Public Use
  Company Number: US-US-EMD SERONO, INC.-7100798

PATIENT
  Sex: Female
  Weight: 59 kg

DRUGS (1)
  1. REBIF [Suspect]
     Indication: MULTIPLE SCLEROSIS
     Route: 058
     Dates: start: 20100217

REACTIONS (12)
  - OSTEOARTHRITIS [None]
  - ANXIETY [None]
  - INJECTION SITE DISCOMFORT [None]
  - FALL [None]
  - MUSCULAR WEAKNESS [None]
  - GAIT DISTURBANCE [None]
  - HEADACHE [None]
  - ERYTHEMA INFECTIOSUM [None]
  - INJECTION SITE HAEMATOMA [None]
  - BACK INJURY [None]
  - PYREXIA [None]
  - INJECTION SITE ERYTHEMA [None]
